FAERS Safety Report 8047519-2 (Version None)
Quarter: 2012Q1

REPORT INFORMATION
  Report Type: 
  Country: None (occurrence: None)
  Receive Date: 20120116
  Receipt Date: 20120106
  Transmission Date: 20120608
  Serious: Yes (Hospitalization)
  Sender: FDA-Public Use
  Company Number: US-BAYER-2012-003000

PATIENT
  Age: 61 Year
  Sex: Female
  Weight: 72.562 kg

DRUGS (2)
  1. ASPIRIN [Suspect]
     Indication: ISCHAEMIC HEART DISEASE PROPHYLAXIS
     Dosage: 2 DF, ONCE
     Route: 048
     Dates: start: 20111228
  2. VYTORIN [Concomitant]

REACTIONS (16)
  - SOMNOLENCE [None]
  - FATIGUE [None]
  - LOSS OF CONSCIOUSNESS [None]
  - DISTURBANCE IN ATTENTION [None]
  - VERTIGO [None]
  - ALTERED STATE OF CONSCIOUSNESS [None]
  - DIPLOPIA [None]
  - DYSARTHRIA [None]
  - UNRESPONSIVE TO STIMULI [None]
  - FEELING ABNORMAL [None]
  - FEELING DRUNK [None]
  - DIZZINESS [None]
  - SPEECH DISORDER [None]
  - ABNORMAL BEHAVIOUR [None]
  - DYSSTASIA [None]
  - NYSTAGMUS [None]
